FAERS Safety Report 4706761-6 (Version None)
Quarter: 2005Q2

REPORT INFORMATION
  Report Type: 
  Country: None (occurrence: None)
  Receive Date: 20050629
  Receipt Date: 20050301
  Transmission Date: 20051028
  Serious: No
  Sender: FDA-Public Use
  Company Number: 05P-163-0292356-00

PATIENT
  Age: 75 Year
  Sex: Female
  Weight: 54.4316 kg

DRUGS (14)
  1. HUMIRA [Suspect]
     Indication: RHEUMATOID ARTHRITIS
     Dosage: 40 MG, 1 IN 1 WK, SUBCUTANEOUS
     Route: 058
     Dates: start: 20040101, end: 20040101
  2. HUMIRA [Suspect]
     Indication: RHEUMATOID ARTHRITIS
     Dosage: 40 MG, 1 IN 1 WK, SUBCUTANEOUS
     Route: 058
     Dates: start: 20040101, end: 20050201
  3. DEXTROPROPOXYPHENE HYDROCHLORIDE [Concomitant]
  4. RETINOL [Concomitant]
  5. ASCORBIC ACID [Concomitant]
  6. CALCIUM GLUCONATE [Concomitant]
  7. LEVOTHYROXINE SODIUM [Concomitant]
  8. DILTIAZEM [Concomitant]
  9. POTASSIUM CHLORIDE [Concomitant]
  10. LANSOPRAZOLE [Concomitant]
  11. FOSINOPRIL SODIUM [Concomitant]
  12. RALOXIFENE HYDROCHLORIDE [Concomitant]
  13. ZOCOR [Concomitant]
  14. . [Suspect]

REACTIONS (2)
  - BLOOD CREATININE INCREASED [None]
  - RASH MACULAR [None]
